FAERS Safety Report 9320961 (Version 1)
Quarter: 2013Q2

REPORT INFORMATION
  Report Type: Spontaneous
  Country: US (occurrence: None)
  Receive Date: 20130529
  Receipt Date: 20130529
  Transmission Date: 20140414
  Serious: Yes (Hospitalization)
  Sender: FDA-Public Use
  Company Number: None

PATIENT
  Age: 74 Year
  Sex: Male
  Weight: 73.2 kg

DRUGS (3)
  1. WARFARIN [Suspect]
     Indication: ATRIAL FIBRILLATION
     Dosage: MG EVERY DAY PO
     Dates: start: 20081108
  2. ASPIRIN [Suspect]
     Route: 048
     Dates: start: 20130322, end: 20130520
  3. ASPIRIN [Suspect]
     Indication: CORONARY ARTERY DISEASE
     Route: 048
     Dates: start: 20130322, end: 20130520

REACTIONS (8)
  - Fatigue [None]
  - Dyspnoea [None]
  - Haemoptysis [None]
  - International normalised ratio increased [None]
  - Haemoglobin decreased [None]
  - Haematocrit decreased [None]
  - Oesophageal ulcer haemorrhage [None]
  - Gastric haemorrhage [None]
